FAERS Safety Report 11514325 (Version 1)
Quarter: 2015Q3

REPORT INFORMATION
  Report Type: Spontaneous
  Country: US (occurrence: US)
  Receive Date: 20150916
  Receipt Date: 20150916
  Transmission Date: 20151125
  Serious: Yes (Other)
  Sender: FDA-Public Use
  Company Number: US-TAKEDA-TPA2013A07708

PATIENT

DRUGS (8)
  1. ACTOPLUS MET [Suspect]
     Active Substance: METFORMIN HYDROCHLORIDE\PIOGLITAZONE HYDROCHLORIDE
     Indication: TYPE 2 DIABETES MELLITUS
     Dosage: 15/500MG, 15/850 MG, UNK
     Route: 048
     Dates: start: 200009, end: 201109
  2. AMARYL [Concomitant]
     Active Substance: GLIMEPIRIDE
     Dosage: 1 MG, UNK
     Dates: start: 2011, end: 2012
  3. ACTOS [Suspect]
     Active Substance: PIOGLITAZONE HYDROCHLORIDE
     Indication: TYPE 2 DIABETES MELLITUS
     Dosage: 15MG, 30 MG, 45MG, UNK
     Route: 048
     Dates: start: 200009, end: 201109
  4. METFORMIN [Concomitant]
     Active Substance: METFORMIN HYDROCHLORIDE
     Dosage: 500 MG, UNK
     Dates: start: 2006, end: 2007
  5. DIABETA                            /00145301/ [Concomitant]
     Dosage: 2.5 MG, UNK
     Dates: start: 2003, end: 2006
  6. JANUVIA [Concomitant]
     Active Substance: SITAGLIPTIN PHOSPHATE
     Dosage: 50 MG, UNK
     Dates: start: 2012
  7. GLUCOPHAGE [Concomitant]
     Active Substance: METFORMIN HYDROCHLORIDE
     Dosage: UNK
     Dates: start: 2000
  8. JANUMET [Concomitant]
     Active Substance: METFORMIN HYDROCHLORIDE\SITAGLIPTIN PHOSPHATE
     Indication: DIABETES MELLITUS
     Dosage: 50/500 MG, UNK
     Dates: start: 2007, end: 2012

REACTIONS (1)
  - Bladder cancer [Unknown]

NARRATIVE: CASE EVENT DATE: 20111102
